FAERS Safety Report 9335179 (Version 4)
Quarter: 2013Q3

REPORT INFORMATION
  Report Type: Report from Study
  Country: GB (occurrence: GB)
  Receive Date: 20130606
  Receipt Date: 20130903
  Transmission Date: 20140515
  Serious: Yes (Death, Life-Threatening, Hospitalization)
  Sender: FDA-Public Use
  Company Number: GB-GLAXOSMITHKLINE-B0893668A

PATIENT
  Age: 80 Year
  Sex: Male

DRUGS (10)
  1. FUROSEMIDE [Suspect]
     Route: 048
     Dates: start: 20130503, end: 20130508
  2. TIOTROPIUM [Suspect]
     Indication: CHRONIC OBSTRUCTIVE PULMONARY DISEASE
     Route: 055
     Dates: start: 20120727
  3. INDACATEROL MALEATE [Suspect]
     Indication: CHRONIC OBSTRUCTIVE PULMONARY DISEASE
     Route: 055
     Dates: start: 20120727
  4. FLUTICASONE [Suspect]
     Indication: CHRONIC OBSTRUCTIVE PULMONARY DISEASE
     Route: 055
     Dates: start: 20120727
  5. OXYGEN [Concomitant]
     Indication: CHRONIC OBSTRUCTIVE PULMONARY DISEASE
     Route: 055
     Dates: start: 20130408, end: 20130613
  6. SALBUTAMOL(NEBULES) [Concomitant]
     Indication: CHRONIC OBSTRUCTIVE PULMONARY DISEASE
     Route: 055
     Dates: start: 20130410
  7. ISOSORBIDE MONONITRATE [Concomitant]
     Indication: ANGINA UNSTABLE
     Route: 048
     Dates: start: 20130205
  8. SPIRIVA [Concomitant]
     Indication: CHRONIC OBSTRUCTIVE PULMONARY DISEASE
     Route: 055
     Dates: start: 20111021
  9. INDACATEROL [Concomitant]
     Indication: CHRONIC OBSTRUCTIVE PULMONARY DISEASE
     Route: 055
     Dates: start: 20120405
  10. FLIXOTIDE [Concomitant]
     Indication: CHRONIC OBSTRUCTIVE PULMONARY DISEASE
     Route: 055
     Dates: start: 20120405

REACTIONS (6)
  - Renal function test abnormal [Recovered/Resolved]
  - Confusional state [Not Recovered/Not Resolved]
  - Urinary retention [Not Recovered/Not Resolved]
  - Pneumonia [Fatal]
  - Sepsis [Not Recovered/Not Resolved]
  - Acute coronary syndrome [Not Recovered/Not Resolved]
